FAERS Safety Report 7892686-4 (Version None)
Quarter: 2011Q4

REPORT INFORMATION
  Report Type: 
  Country: None (occurrence: None)
  Receive Date: 20111102
  Receipt Date: 20111027
  Transmission Date: 20120403
  Serious: Yes (Hospitalization, Other)
  Sender: FDA-Public Use
  Company Number: 2009SP021070

PATIENT
  Age: 27 Year
  Sex: Female
  Weight: 86.637 kg

DRUGS (3)
  1. AMITRIPTYLINE HCL [Concomitant]
  2. NEURONTIN [Concomitant]
  3. NUVARING [Suspect]
     Indication: CONTRACEPTION
     Dates: start: 20050525, end: 20060501

REACTIONS (26)
  - PRODUCT QUALITY ISSUE [None]
  - MENTAL DISORDER [None]
  - POOR PERIPHERAL CIRCULATION [None]
  - ECTOPIC PREGNANCY [None]
  - PREGNANCY WITH CONTRACEPTIVE DEVICE [None]
  - ANAEMIA [None]
  - PNEUMONIA [None]
  - DEEP VEIN THROMBOSIS [None]
  - ACUTE MYOCARDIAL INFARCTION [None]
  - OROPHARYNGEAL PAIN [None]
  - UNEVALUABLE EVENT [None]
  - HYPERCOAGULATION [None]
  - RETAINED PLACENTA OR MEMBRANES [None]
  - DEAFNESS [None]
  - IMMINENT ABORTION [None]
  - HEPATITIS C ANTIBODY POSITIVE [None]
  - CHOLELITHIASIS [None]
  - CHOLECYSTITIS INFECTIVE [None]
  - ANXIETY [None]
  - MATERNAL EXPOSURE DURING PREGNANCY [None]
  - PAIN [None]
  - SKIN DISCOLOURATION [None]
  - EMBOLISM [None]
  - ARTERIAL OCCLUSIVE DISEASE [None]
  - LOSS OF EMPLOYMENT [None]
  - EUSTACHIAN TUBE DYSFUNCTION [None]
